FAERS Safety Report 8787920 (Version 2)
Quarter: 2015Q2

REPORT INFORMATION
  Report Type: Report from Study
  Country: US (occurrence: US)
  Receive Date: 20120914
  Receipt Date: 20150623
  Transmission Date: 20150821
  Serious: Yes (Death, Hospitalization)
  Sender: FDA-Public Use
  Company Number: US-ROCHE-1127124

PATIENT
  Age: 57 Year
  Sex: Female

DRUGS (34)
  1. DEXAMETHASONE. [Concomitant]
     Active Substance: DEXAMETHASONE
     Route: 048
  2. NEULASTA [Concomitant]
     Active Substance: PEGFILGRASTIM
     Route: 058
  3. AREDIA [Concomitant]
     Active Substance: PAMIDRONATE DISODIUM
     Route: 065
  4. AVASTIN [Suspect]
     Active Substance: BEVACIZUMAB
     Route: 042
     Dates: start: 20060612
  5. CARBOPLATIN. [Concomitant]
     Active Substance: CARBOPLATIN
     Dosage: IN 500CC NS OVER 1 HOUR
     Route: 042
  6. KYTRIL [Concomitant]
     Active Substance: GRANISETRON HYDROCHLORIDE
     Dosage: IN 100 CC NS
     Route: 042
  7. OXYCODONE HCL CONTROLLED-RELEASE [Concomitant]
     Active Substance: OXYCODONE HYDROCHLORIDE
     Dosage: 5 MG/325 MG 1 - 2
     Route: 048
  8. ARANESP [Concomitant]
     Active Substance: DARBEPOETIN ALFA
     Route: 058
  9. OXYCONTIN [Concomitant]
     Active Substance: OXYCODONE HYDROCHLORIDE
     Route: 065
  10. MS CONTIN [Concomitant]
     Active Substance: MORPHINE SULFATE
     Route: 065
  11. DILAUDID [Concomitant]
     Active Substance: HYDROMORPHONE HYDROCHLORIDE
  12. PAROXETINE [Concomitant]
     Active Substance: PAROXETINE\PAROXETINE HYDROCHLORIDE
     Route: 065
  13. CARBOPLATIN. [Concomitant]
     Active Substance: CARBOPLATIN
     Dosage: IN 250CC NS OVER 30MINS/OS
     Route: 042
  14. DEXAMETHASONE. [Concomitant]
     Active Substance: DEXAMETHASONE
     Dosage: LOADING DOSE
     Route: 042
  15. BENADRYL [Concomitant]
     Active Substance: DIPHENHYDRAMINE HYDROCHLORIDE
     Dosage: IN 100 CC NS
     Route: 042
  16. VICODIN [Concomitant]
     Active Substance: ACETAMINOPHEN\HYDROCODONE BITARTRATE
     Dosage: 1 - 2 EVERY 4 HOURS
     Route: 065
  17. TAXOL [Concomitant]
     Active Substance: PACLITAXEL
     Dosage: IN 500 CC NS OVER 3 HOURS FOLLOWED BY 20% DOSE RED
     Route: 042
  18. DEXAMETHASONE. [Concomitant]
     Active Substance: DEXAMETHASONE
     Dosage: MAINTENANCE DOSE
     Route: 042
  19. HEPARIN [Concomitant]
     Active Substance: HEPARIN SODIUM
     Route: 042
  20. DULCOLAX (BISACODYL) [Concomitant]
     Active Substance: BISACODYL
     Dosage: EACH NIGHT
     Route: 065
  21. OXYCODONE HCL CONTROLLED-RELEASE [Concomitant]
     Active Substance: OXYCODONE HYDROCHLORIDE
     Route: 065
  22. AVASTIN [Suspect]
     Active Substance: BEVACIZUMAB
     Indication: LUNG NEOPLASM MALIGNANT
     Route: 042
     Dates: start: 20060612
  23. TAXOL [Concomitant]
     Active Substance: PACLITAXEL
     Route: 042
  24. COMPAZINE [Concomitant]
     Active Substance: PROCHLORPERAZINE MALEATE
     Dosage: Q 6 - 8 PRN
     Route: 048
  25. LISINOPRIL. [Concomitant]
     Active Substance: LISINOPRIL
     Route: 065
  26. ALBUTEROL. [Concomitant]
     Active Substance: ALBUTEROL
     Dosage: PM
     Route: 045
  27. CARBOPLATIN. [Concomitant]
     Active Substance: CARBOPLATIN
     Dosage: IN 250CC NS OVER 30MINS/OS
     Route: 042
  28. MILK OF MAGNESIA [Concomitant]
     Active Substance: MAGNESIUM HYDROXIDE
     Dosage: PM
     Route: 065
  29. NIFEDICAL XL [Concomitant]
     Active Substance: NIFEDIPINE
     Route: 065
  30. NEXIUM [Concomitant]
     Active Substance: ESOMEPRAZOLE MAGNESIUM
     Route: 065
  31. AVASTIN [Suspect]
     Active Substance: BEVACIZUMAB
     Route: 042
     Dates: start: 20060612
  32. TAXOL [Concomitant]
     Active Substance: PACLITAXEL
     Route: 042
  33. ZANTAC [Concomitant]
     Active Substance: RANITIDINE HYDROCHLORIDE
     Route: 042
  34. ZOCOR [Concomitant]
     Active Substance: SIMVASTATIN
     Route: 065

REACTIONS (23)
  - Back pain [Unknown]
  - Pleural fibrosis [Unknown]
  - Depression [Unknown]
  - Muscular weakness [Unknown]
  - Off label use [Unknown]
  - Constipation [Unknown]
  - Urinary hesitation [Unknown]
  - Mass [Unknown]
  - Pallor [Unknown]
  - Death [Fatal]
  - Nervousness [Unknown]
  - Somnolence [Unknown]
  - Osteolysis [Unknown]
  - Discomfort [Unknown]
  - Musculoskeletal pain [Unknown]
  - Arthralgia [Unknown]
  - Thrombocytopenia [Unknown]
  - Productive cough [Unknown]
  - Hemiparesis [Unknown]
  - Fatigue [Unknown]
  - Hypoaesthesia [Unknown]
  - Dysuria [Unknown]
  - Weight decreased [Unknown]

NARRATIVE: CASE EVENT DATE: 20061214
